FAERS Safety Report 24298834 (Version 1)
Quarter: 2024Q3

REPORT INFORMATION
  Report Type: Spontaneous
  Country: IT (occurrence: IT)
  Receive Date: 20240909
  Receipt Date: 20240909
  Transmission Date: 20241016
  Serious: Yes (Hospitalization, Other)
  Sender: AMGEN
  Company Number: IT-AMGEN-ITASP2024176355

PATIENT
  Age: 4 Year
  Sex: Female

DRUGS (14)
  1. FILGRASTIM [Suspect]
     Active Substance: FILGRASTIM
     Indication: Neutropenia
     Dosage: UP TO A MAXIMUM DOSE OF 20 MCG/KG DAILY
     Route: 065
  2. PREDNISONE [Suspect]
     Active Substance: PREDNISONE
     Indication: Neutropenia
     Dosage: 2.5 MILLIGRAM/KILOGRAM, QD
     Route: 065
  3. PREDNISONE [Suspect]
     Active Substance: PREDNISONE
     Dosage: 1 MILLIGRAM/KILOGRAM, QD
     Route: 065
  4. SIROLIMUS [Suspect]
     Active Substance: SIROLIMUS
     Indication: Product used for unknown indication
     Dosage: UNK
     Route: 065
  5. FLUDARABINE [Concomitant]
     Active Substance: FLUDARABINE PHOSPHATE
     Dosage: 3 X 50 MG/M2/DAY
     Route: 065
  6. THIOTEPA [Concomitant]
     Active Substance: THIOTEPA
     Dosage: 2 X 5 MG/KG/DAY
     Route: 065
  7. BUSULFAN [Concomitant]
     Active Substance: BUSULFAN
     Dosage: 16 X 0. 8 MG/KG (EVERY 6 H)
     Route: 065
  8. LAPINE T-LYMPHOCYTE IMMUNE GLOBULIN [Concomitant]
     Active Substance: LAPINE T-LYMPHOCYTE IMMUNE GLOBULIN
     Dosage: 3 X 4 MG/KG/DAY
     Route: 065
  9. RITUXIMAB [Concomitant]
     Active Substance: RITUXIMAB
     Dosage: 1 X 375 MG/M2/DAY
     Route: 065
  10. CYCLOSPORINE [Concomitant]
     Active Substance: CYCLOSPORINE
     Dosage: FROM DAY 0 TO DAY +28
     Route: 065
  11. MYCOPHENOLATE MOFETIL [Concomitant]
     Active Substance: MYCOPHENOLATE MOFETIL
     Dosage: UNK
     Route: 065
  12. METHOTREXATE [Concomitant]
     Active Substance: METHOTREXATE
     Dosage: FROM DAY 0 TO DAY +28
     Route: 065
  13. TACROLIMUS [Concomitant]
     Active Substance: TACROLIMUS
     Dosage: FROM DAY +29
     Route: 065
  14. THYMOCYTE IMMUNE GLOBULIN NOS [Concomitant]
     Active Substance: THYMOCYTE IMMUNE GLOBULIN NOS
     Dosage: FROM DAY 0 TO DAY +28
     Route: 065

REACTIONS (12)
  - Abdominal pain [Recovered/Resolved]
  - Autoimmune neutropenia [Recovered/Resolved]
  - Cerebral haemorrhage [Recovered/Resolved]
  - Thrombosis [Recovered/Resolved]
  - Acute graft versus host disease in intestine [Recovered/Resolved]
  - Acute graft versus host disease in skin [Unknown]
  - Cytomegalovirus infection reactivation [Recovered/Resolved]
  - Osteonecrosis [Recovered/Resolved]
  - Pyrexia [Recovered/Resolved]
  - T-lymphocyte count increased [Recovered/Resolved]
  - Livedo reticularis [Recovered/Resolved]
  - Therapy non-responder [Recovered/Resolved]
